FAERS Safety Report 7914876-4 (Version None)
Quarter: 2011Q4

REPORT INFORMATION
  Report Type: 
  Country: None (occurrence: None)
  Receive Date: 20111115
  Receipt Date: 20110621
  Transmission Date: 20120403
  Serious: Yes (Hospitalization)
  Sender: FDA-Public Use
  Company Number: US-ROCHE-1008757

PATIENT
  Sex: Female
  Weight: 85.806 kg

DRUGS (3)
  1. COPEGUS [Suspect]
     Indication: HEPATITIS C
     Route: 048
     Dates: start: 20110415, end: 20110618
  2. TELAPREVIR [Suspect]
     Indication: HEPATITIS C
     Route: 048
     Dates: start: 20110415, end: 20110618
  3. PEGINTERFERON ALFA-2A [Suspect]
     Indication: HEPATITIS C
     Dates: start: 20110415, end: 20110618

REACTIONS (2)
  - DRUG ERUPTION [None]
  - SYSTEMIC INFLAMMATORY RESPONSE SYNDROME [None]
